FAERS Safety Report 6178031-3 (Version None)
Quarter: 2009Q2

REPORT INFORMATION
  Report Type: 
  Country: None (occurrence: None)
  Receive Date: 20090504
  Receipt Date: 20090423
  Transmission Date: 20091009
  Serious: Yes (Other)
  Sender: FDA-Public Use
  Company Number: AT-ELI_LILLY_AND_COMPANY-AT200904005711

PATIENT
  Age: 87 Year
  Sex: Female

DRUGS (4)
  1. FORTEO [Suspect]
     Indication: OSTEOPOROSIS
     Dosage: UNK, UNKNOWN
     Dates: start: 20080114
  2. ASPIRIN [Concomitant]
  3. ACE INHIBITOR NOS [Concomitant]
  4. CAL D VITA [Concomitant]

REACTIONS (2)
  - EXTRASKELETAL OSSIFICATION [None]
  - PAIN [None]
